FAERS Safety Report 8329031-6 (Version None)
Quarter: 2012Q2

REPORT INFORMATION
  Report Type: 
  Country: None (occurrence: None)
  Receive Date: 20120430
  Receipt Date: 20120416
  Transmission Date: 20120825
  Serious: Yes (Hospitalization, Other)
  Sender: FDA-Public Use
  Company Number: AUR-APL-2012-01875

PATIENT
  Age: 61 Year
  Sex: Female

DRUGS (6)
  1. FLUOXETINE [Suspect]
     Indication: NEGATIVE THOUGHTS
     Dosage: (40 MG, 1 D)
  2. TRAZODONE HCL [Suspect]
     Indication: NEGATIVE THOUGHTS
     Dosage: (25 MG, 1 D)
  3. CLOZAPINE [Suspect]
     Indication: SCHIZOPHRENIA, PARANOID TYPE
     Dosage: (500 MG, 1 D)
  4. POLYETHYLENE GLYCOL [Concomitant]
  5. DOCUSATE SODIUM (DOCUSATE SODIUM) [Concomitant]
  6. BISACODYL [Concomitant]

REACTIONS (8)
  - VOMITING [None]
  - ABDOMINAL PAIN [None]
  - ABDOMINAL DISTENSION [None]
  - ABSCESS INTESTINAL [None]
  - GASTROINTESTINAL MOTILITY DISORDER [None]
  - NAUSEA [None]
  - INTESTINAL ISCHAEMIA [None]
  - SMALL INTESTINAL OBSTRUCTION [None]
